FAERS Safety Report 17546792 (Version 1)
Quarter: 2020Q1

REPORT INFORMATION
  Report Type: Spontaneous
  Country: US (occurrence: US)
  Receive Date: 20200316
  Receipt Date: 20200316
  Transmission Date: 20200409
  Serious: No
  Sender: FDA-Public Use
  Company Number: US-SA-2020SA060440

PATIENT
  Age: 15 Year
  Sex: Male

DRUGS (12)
  1. EUCRISA [Concomitant]
     Active Substance: CRISABOROLE
  2. DUPIXENT [Suspect]
     Active Substance: DUPILUMAB
     Dosage: 300 MG, QOW
     Route: 058
  3. ADVAIR HFA [Concomitant]
     Active Substance: FLUTICASONE PROPIONATE\SALMETEROL XINAFOATE
  4. DESONIDE. [Concomitant]
     Active Substance: DESONIDE
  5. TRIAMCINOLONE [Concomitant]
     Active Substance: TRIAMCINOLONE
  6. ALBUTEROL SULFATE HFA [Concomitant]
     Active Substance: ALBUTEROL SULFATE
  7. AUVI-Q [Concomitant]
     Active Substance: EPINEPHRINE
  8. BENADRYL ALLERGY [Concomitant]
     Active Substance: DIPHENHYDRAMINE HYDROCHLORIDE
  9. CLARITIN [Concomitant]
     Active Substance: LORATADINE
  10. FLONASE ALLERGY RELIEF [Concomitant]
     Active Substance: FLUTICASONE PROPIONATE
  11. DUPIXENT [Suspect]
     Active Substance: DUPILUMAB
     Dosage: UNK
  12. CLOBETASOL 17 PROP [Concomitant]
     Active Substance: CLOBETASOL PROPIONATE

REACTIONS (1)
  - Influenza [Unknown]
